FAERS Safety Report 7893417-4 (Version None)
Quarter: 2011Q4

REPORT INFORMATION
  Report Type: 
  Country: None (occurrence: None)
  Receive Date: 20111104
  Receipt Date: 20111028
  Transmission Date: 20120403
  Serious: Yes (Hospitalization, Other)
  Sender: FDA-Public Use
  Company Number: US-JNJFOC-20070104789

PATIENT
  Sex: Male
  Weight: 70 kg

DRUGS (8)
  1. ZOLOFT [Concomitant]
  2. OLANZAPINE [Suspect]
     Indication: PRODUCT USED FOR UNKNOWN INDICATION
  3. SEROQUEL [Suspect]
     Indication: ANXIETY DISORDER
     Route: 065
     Dates: start: 20020302, end: 20030102
  4. CLONIDINE [Concomitant]
  5. SEROQUEL [Suspect]
     Indication: OBSESSIVE-COMPULSIVE DISORDER
     Route: 065
     Dates: start: 20020302, end: 20030102
  6. RISPERDAL [Suspect]
     Indication: OBSESSIVE-COMPULSIVE DISORDER
     Route: 065
     Dates: start: 20011102, end: 20020202
  7. RISPERDAL [Suspect]
     Indication: PRODUCT USED FOR UNKNOWN INDICATION
  8. RISPERDAL [Suspect]
     Indication: ANXIETY DISORDER
     Route: 065
     Dates: start: 20011102, end: 20020202

REACTIONS (16)
  - MASTECTOMY [None]
  - HYPERPROLACTINAEMIA [None]
  - IMPULSIVE BEHAVIOUR [None]
  - ANXIETY [None]
  - AGITATION [None]
  - ABNORMAL WEIGHT GAIN [None]
  - HOSTILITY [None]
  - AGGRESSION [None]
  - DIABETIC KETOACIDOSIS [None]
  - TYPE 1 DIABETES MELLITUS [None]
  - AKATHISIA [None]
  - IRRITABILITY [None]
  - DIABETIC COMA [None]
  - GYNAECOMASTIA [None]
  - SUICIDAL IDEATION [None]
  - PANCREATITIS [None]
